FAERS Safety Report 5001830-8 (Version None)
Quarter: 2006Q2

REPORT INFORMATION
  Report Type: 
  Country: None (occurrence: None)
  Receive Date: 20060515
  Receipt Date: 20060506
  Transmission Date: 20061013
  Serious: Yes (Life-Threatening, Disabling, Other)
  Sender: FDA-Public Use
  Company Number: BR-GLAXOSMITHKLINE-A0605442A

PATIENT
  Age: 37 Year
  Sex: Female

DRUGS (1)
  1. ZYBAN [Suspect]
     Indication: SUICIDE ATTEMPT
     Dosage: 26TAB SINGLE DOSE
     Route: 048
     Dates: start: 20050506, end: 20050506

REACTIONS (3)
  - HALLUCINATION [None]
  - SOMNOLENCE [None]
  - SUICIDE ATTEMPT [None]
